FAERS Safety Report 5571884-9 (Version None)
Quarter: 2007Q4

REPORT INFORMATION
  Report Type: 
  Country: None (occurrence: None)
  Receive Date: 20071221
  Receipt Date: 20071211
  Transmission Date: 20080405
  Serious: Yes (Other)
  Sender: FDA-Public Use
  Company Number: JP-SANOFI-SYNTHELABO-A01200713042

PATIENT
  Age: 1136 Month
  Sex: Male

DRUGS (14)
  1. ALFAROL [Concomitant]
     Indication: DRUG USE FOR UNKNOWN INDICATION
     Dosage: UNK
     Route: 065
  2. JUVELA N [Concomitant]
     Indication: DRUG USE FOR UNKNOWN INDICATION
     Dosage: UNK
     Route: 065
  3. URINORM [Concomitant]
     Indication: DRUG USE FOR UNKNOWN INDICATION
     Dosage: UNK
     Route: 065
  4. METAPASS [Concomitant]
     Indication: DRUG USE FOR UNKNOWN INDICATION
     Dosage: UNK
     Route: 065
  5. NEUROVITAN [Concomitant]
     Indication: DRUG USE FOR UNKNOWN INDICATION
     Dosage: UNK
     Route: 065
  6. CELECOXIB [Suspect]
     Indication: DRUG USE FOR UNKNOWN INDICATION
     Dosage: 200 MG
     Route: 048
     Dates: start: 20070727, end: 20070831
  7. PROGRAF [Suspect]
     Indication: DRUG USE FOR UNKNOWN INDICATION
     Dosage: 0.5 MG
     Route: 048
     Dates: start: 20070417, end: 20070605
  8. PROGRAF [Suspect]
     Dosage: 1 MG
     Route: 048
     Dates: start: 20070606, end: 20071001
  9. PROGRAF [Suspect]
     Dosage: 1.5 MG
     Route: 048
     Dates: start: 20071002, end: 20071030
  10. GASUISAN [Concomitant]
     Indication: DRUG USE FOR UNKNOWN INDICATION
     Dosage: UNK
     Route: 065
  11. MYSLEE [Suspect]
     Indication: DRUG USE FOR UNKNOWN INDICATION
     Dosage: 5 MG
     Route: 048
  12. PREDNISOLONE [Concomitant]
     Indication: DRUG USE FOR UNKNOWN INDICATION
     Dosage: 10 MG
     Route: 048
     Dates: start: 20060718, end: 20061002
  13. PREDNISOLONE [Concomitant]
     Dosage: 8 MG
     Route: 048
     Dates: start: 20070505
  14. AZULFIDINE EN-TABS [Concomitant]
     Dosage: 250 MG
     Route: 048
     Dates: start: 20061012, end: 20061110

REACTIONS (1)
  - HEPATIC FUNCTION ABNORMAL [None]
